FAERS Safety Report 7954543-4 (Version None)
Quarter: 2011Q4

REPORT INFORMATION
  Report Type: 
  Country: None (occurrence: None)
  Receive Date: 20111202
  Receipt Date: 20111128
  Transmission Date: 20120403
  Serious: No
  Sender: FDA-Public Use
  Company Number: PHHY2010BR16720

PATIENT
  Sex: Female

DRUGS (4)
  1. SIMVASTATIN [Concomitant]
     Dosage: 20 MG, UNK
  2. EXFORGE [Suspect]
     Dosage: 160/5 MG; UNK
     Route: 048
  3. AMIODARONE HCL [Concomitant]
     Dosage: 200 MG, UNK
  4. APRESOLINE [Suspect]
     Dosage: 25 MG, UNK

REACTIONS (1)
  - NO ADVERSE EVENT [None]
